FAERS Safety Report 8724784 (Version 2)
Quarter: 2012Q4

REPORT INFORMATION
  Report Type: 
  Country: US (occurrence: US)
  Receive Date: 20120815
  Receipt Date: 20121114
  Transmission Date: 20130627
  Serious: Yes (Hospitalization)
  Sender: FDA-Public Use
  Company Number: US-ALEXION PHARMACEUTICALS INC.-A201201504

PATIENT
  Sex: Male

DRUGS (12)
  1. SOLIRIS 300MG [Suspect]
     Indication: PAROXYSMAL NOCTURNAL HAEMOGLOBINURIA
     Dosage: UNK
     Route: 042
     Dates: start: 201206
  2. PREDNISONE [Concomitant]
  3. DANAZOL [Concomitant]
  4. CYCLOSPORINE [Concomitant]
  5. MAGNESIUM [Concomitant]
  6. LISINOPRIL [Concomitant]
  7. FLUCONAZOLE [Concomitant]
  8. AMLODIPINE [Concomitant]
  9. INSULIN, REGULAR [Concomitant]
  10. LANTUS [Concomitant]
  11. PEPCID [Concomitant]
  12. TRIMETHOPRIM SULFA [Concomitant]

REACTIONS (1)
  - Aspergillosis [Not Recovered/Not Resolved]
